FAERS Safety Report 8191127-X (Version None)
Quarter: 2012Q1

REPORT INFORMATION
  Report Type: 
  Country: None (occurrence: None)
  Receive Date: 20120221
  Receipt Date: 20111114
  Transmission Date: 20120608
  Serious: No
  Sender: FDA-Public Use
  Company Number: 1000025455

PATIENT
  Age: 42 Year
  Sex: Female

DRUGS (2)
  1. VIIBRYD [Suspect]
     Indication: DEPRESSION
     Dosage: 40 MG (40 MG, 1 IN 1 D), ORAL
     Route: 048
     Dates: start: 20111024
  2. BUPROPION (BUPROPION) (BUPROPION) [Concomitant]

REACTIONS (3)
  - WEIGHT INCREASED [None]
  - INCREASED APPETITE [None]
  - HEADACHE [None]
